FAERS Safety Report 7612344-0 (Version None)
Quarter: 2011Q3

REPORT INFORMATION
  Report Type: 
  Country: None (occurrence: None)
  Receive Date: 20110715
  Receipt Date: 20110706
  Transmission Date: 20111222
  Serious: Yes (Hospitalization, Other)
  Sender: FDA-Public Use
  Company Number: US-ASTRAZENECA-2010SE48949

PATIENT
  Age: 57 Year
  Sex: Female

DRUGS (4)
  1. PRILOSEC [Suspect]
     Route: 048
  2. TAGAMENT [Concomitant]
  3. PREVACID [Concomitant]
  4. NEXIUM [Suspect]
     Route: 048

REACTIONS (22)
  - FOOT FRACTURE [None]
  - OSTEOMYELITIS [None]
  - ANXIETY DISORDER [None]
  - PANIC DISORDER [None]
  - HYPOAESTHESIA [None]
  - CERVICAL VERTEBRAL FRACTURE [None]
  - INTERVERTEBRAL DISC PROTRUSION [None]
  - DRUG INEFFECTIVE [None]
  - MASTECTOMY [None]
  - FALL [None]
  - ROAD TRAFFIC ACCIDENT [None]
  - PARESIS [None]
  - HIP FRACTURE [None]
  - DYSGRAPHIA [None]
  - HIP SURGERY [None]
  - ANKLE FRACTURE [None]
  - BALANCE DISORDER [None]
  - NEUROPATHY PERIPHERAL [None]
  - BONE DENSITY ABNORMAL [None]
  - FEMORAL NECK FRACTURE [None]
  - TIBIA FRACTURE [None]
  - OSTEOPOROSIS [None]
